FAERS Safety Report 8772150 (Version 2)
Quarter: 2012Q4

REPORT INFORMATION
  Report Type: 
  Country: US (occurrence: US)
  Receive Date: 20120905
  Receipt Date: 20121002
  Transmission Date: 20130627
  Serious: No
  Sender: FDA-Public Use
  Company Number: US-009507513-1208USA009476

PATIENT
  Age: 4 Year
  Sex: Female
  Weight: 16.33 kg

DRUGS (2)
  1. MIRALAX [Suspect]
     Indication: URINARY TRACT INFECTION
     Dosage: 4.25 g, qd
     Route: 048
     Dates: start: 20120803, end: 20120812
  2. MIRALAX [Suspect]
     Indication: MEDICAL OBSERVATION

REACTIONS (5)
  - Rash [Recovered/Resolved]
  - Drug administered to patient of inappropriate age [Unknown]
  - Wrong technique in drug usage process [Unknown]
  - Off label use [Unknown]
  - Underdose [Unknown]
